FAERS Safety Report 21161211 (Version 1)
Quarter: 2022Q3

REPORT INFORMATION
  Report Type: Spontaneous
  Country: US (occurrence: US)
  Receive Date: 20220802
  Receipt Date: 20220802
  Transmission Date: 20221026
  Serious: No
  Sender: FDA-Public Use
  Company Number: US-BRISTOL-MYERS SQUIBB COMPANY-2022-083531

PATIENT
  Sex: Female

DRUGS (1)
  1. REVLIMID [Suspect]
     Active Substance: LENALIDOMIDE
     Indication: Extranodal marginal zone B-cell lymphoma (MALT type)
     Dosage: FREQ : FOR 21 DAYS AND 7 DAYS OFF
     Route: 048
     Dates: start: 20220606

REACTIONS (3)
  - Rash pruritic [Unknown]
  - Discomfort [Unknown]
  - Intentional product use issue [Unknown]
